FAERS Safety Report 8596634 (Version 3)
Quarter: 2012Q4

REPORT INFORMATION
  Report Type: 
  Country: US (occurrence: US)
  Receive Date: 20120605
  Receipt Date: 20120928
  Transmission Date: 20130627
  Serious: No
  Sender: FDA-Public Use
  Company Number: US-PFIZER INC-2012130271

PATIENT
  Age: 72 Year
  Sex: Female

DRUGS (1)
  1. ATORVASTATIN CALCIUM [Suspect]
     Dosage: 10 mg, 1 daily
     Route: 048
     Dates: start: 20120525, end: 20120529

REACTIONS (2)
  - Nausea [Recovered/Resolved]
  - Diarrhoea [Unknown]
